FAERS Safety Report 17113570 (Version 7)
Quarter: 2022Q2

REPORT INFORMATION
  Report Type: Other
  Country: CA (occurrence: CA)
  Receive Date: 20191205
  Receipt Date: 20220531
  Transmission Date: 20220721
  Serious: Yes (Hospitalization, Disabling, Other)
  Sender: FDA-Public Use
  Company Number: CA-002147023-PHHY2018CA040257

PATIENT
  Age: 36 Year
  Sex: Female

DRUGS (25)
  1. XOLAIR [Suspect]
     Active Substance: OMALIZUMAB
     Indication: Asthma
     Dosage: UNK (12 TO 18 MONTHS)
     Route: 058
     Dates: start: 2003, end: 2005
  2. XOLAIR [Suspect]
     Active Substance: OMALIZUMAB
     Route: 058
     Dates: start: 20190213
  3. XOLAIR [Suspect]
     Active Substance: OMALIZUMAB
     Route: 058
  4. XOLAIR [Suspect]
     Active Substance: OMALIZUMAB
     Route: 058
     Dates: start: 20190410
  5. XOLAIR [Suspect]
     Active Substance: OMALIZUMAB
     Route: 058
     Dates: start: 20190514
  6. XOLAIR [Suspect]
     Active Substance: OMALIZUMAB
     Route: 058
     Dates: start: 20190605
  7. XOLAIR [Suspect]
     Active Substance: OMALIZUMAB
     Route: 058
     Dates: start: 20191023
  8. XOLAIR [Suspect]
     Active Substance: OMALIZUMAB
     Route: 065
  9. SYMBICORT [Concomitant]
     Active Substance: BUDESONIDE\FORMOTEROL FUMARATE DIHYDRATE
     Indication: Asthma
     Dosage: 2 DF, (200 UG, BUDESONIDE, 6 UG, FORMOTEROL FUMARATE) BID
     Route: 055
     Dates: start: 201805
  10. SINGULAIR [Concomitant]
     Active Substance: MONTELUKAST SODIUM
     Indication: Asthma
     Dosage: 1 DF, QD
     Route: 048
     Dates: start: 201805
  11. PULMICORT TURBUHALER [Concomitant]
     Active Substance: BUDESONIDE
     Indication: Asthma
     Dosage: 1 DF, TID
     Route: 055
     Dates: start: 201806
  12. VENTOLIN [Concomitant]
     Active Substance: ALBUTEROL SULFATE
     Indication: Asthma
     Dosage: 2 DF, PRN
     Route: 055
     Dates: start: 1987
  13. PREDNISONE [Concomitant]
     Active Substance: PREDNISONE
     Indication: Product used for unknown indication
     Route: 065
  14. PREDNISONE [Concomitant]
     Active Substance: PREDNISONE
     Route: 065
  15. PANTOPRAZOLE [Concomitant]
     Active Substance: PANTOPRAZOLE
     Indication: Gastrooesophageal reflux disease
     Dosage: 1 DF, BID
     Route: 048
     Dates: start: 2008
  16. PRAMIPEXOLE [Concomitant]
     Active Substance: PRAMIPEXOLE
     Indication: Restless legs syndrome
     Dosage: 1 DF, QD
     Route: 048
     Dates: start: 201801
  17. PREGABALIN [Concomitant]
     Active Substance: PREGABALIN
     Indication: Osteoarthritis
     Dosage: 1 DF, BID
     Route: 048
     Dates: start: 2010
  18. PREGABALIN [Concomitant]
     Active Substance: PREGABALIN
     Indication: Fibromyalgia
  19. DOMPERIDONE [Concomitant]
     Active Substance: DOMPERIDONE
     Indication: Gastrooesophageal reflux disease
     Dosage: 1 DF, BID
     Route: 048
     Dates: start: 201801
  20. DOMPERIDONE [Concomitant]
     Active Substance: DOMPERIDONE
     Indication: Dyspepsia
  21. DICLOFENAC [Concomitant]
     Active Substance: DICLOFENAC
     Indication: Arthritis
     Dosage: 1 DF, BID
     Route: 048
     Dates: start: 2015
  22. DICLOFENAC [Concomitant]
     Active Substance: DICLOFENAC
     Indication: Fibromyalgia
     Dosage: 1 DF, BID
     Route: 048
     Dates: start: 2015
  23. BACLOFEN [Concomitant]
     Active Substance: BACLOFEN
     Indication: Osteoarthritis
     Route: 048
     Dates: start: 201804
  24. BACLOFEN [Concomitant]
     Active Substance: BACLOFEN
     Indication: Fibromyalgia
  25. BACLOFEN [Concomitant]
     Active Substance: BACLOFEN
     Indication: Back pain

REACTIONS (31)
  - Product dose omission issue [Unknown]
  - Inappropriate schedule of product administration [Unknown]
  - Dyspnoea [Unknown]
  - Seasonal allergy [Not Recovered/Not Resolved]
  - Lower respiratory tract infection [Unknown]
  - Forced expiratory volume decreased [Unknown]
  - Bronchitis [Unknown]
  - Respiratory distress [Unknown]
  - Sputum discoloured [Unknown]
  - Adrenal insufficiency [Unknown]
  - Sinusitis [Unknown]
  - Dyspnoea exertional [Unknown]
  - Productive cough [Unknown]
  - Illness [Unknown]
  - Lacrimation increased [Unknown]
  - Sneezing [Unknown]
  - Weight decreased [Unknown]
  - Middle insomnia [Unknown]
  - Nasopharyngitis [Unknown]
  - Chest discomfort [Unknown]
  - Rhinorrhoea [Unknown]
  - Food allergy [Not Recovered/Not Resolved]
  - Dizziness [Unknown]
  - Headache [Unknown]
  - Wheezing [Unknown]
  - Cough [Not Recovered/Not Resolved]
  - Blood pressure increased [Recovering/Resolving]
  - Anaphylactic reaction [Unknown]
  - Asthma [Unknown]
  - General physical health deterioration [Unknown]
  - Addison^s disease [Unknown]

NARRATIVE: CASE EVENT DATE: 20030101
